FAERS Safety Report 19792633 (Version 1)
Quarter: 2021Q3

REPORT INFORMATION
  Report Type: Spontaneous
  Country: US (occurrence: US)
  Receive Date: 20210906
  Receipt Date: 20210906
  Transmission Date: 20211014
  Serious: No
  Sender: FDA-Public Use
  Company Number: US-COVIS PHARMA GMBH-2021COV22901

PATIENT
  Age: 39 Year
  Sex: Female

DRUGS (4)
  1. OMNARIS [Suspect]
     Active Substance: CICLESONIDE
     Indication: CHRONIC SINUSITIS
  2. FLOVENT [Concomitant]
     Active Substance: FLUTICASONE PROPIONATE
     Indication: PRODUCT USED FOR UNKNOWN INDICATION
  3. ALBUTEROL. [Concomitant]
     Active Substance: ALBUTEROL
     Indication: PRODUCT USED FOR UNKNOWN INDICATION
     Dosage: PRN
  4. OMNARIS [Suspect]
     Active Substance: CICLESONIDE
     Indication: ACUTE SINUSITIS
     Dosage: 1?2 PER DAY
     Route: 045

REACTIONS (3)
  - Migraine [Recovered/Resolved]
  - Sinus pain [Recovered/Resolved]
  - Off label use [Unknown]

NARRATIVE: CASE EVENT DATE: 20210607
